FAERS Safety Report 8336769-3 (Version None)
Quarter: 2012Q2

REPORT INFORMATION
  Report Type: 
  Country: None (occurrence: None)
  Receive Date: 20120504
  Receipt Date: 20111229
  Transmission Date: 20120825
  Serious: Yes (Other)
  Sender: FDA-Public Use
  Company Number: TW-JNJFOC-20110904705

PATIENT
  Sex: Male
  Weight: 64 kg

DRUGS (6)
  1. METHOTREXATE [Concomitant]
     Dates: start: 20080618, end: 20090420
  2. PLACEBO [Suspect]
     Indication: RHEUMATOID ARTHRITIS
     Route: 048
     Dates: start: 20061109, end: 20080611
  3. GOLIMUMAB [Suspect]
     Indication: RHEUMATOID ARTHRITIS
     Route: 058
     Dates: start: 20061108
  4. LEFLUNOMIDE [Concomitant]
     Route: 048
     Dates: start: 20080618
  5. METHOTREXATE [Suspect]
     Indication: RHEUMATOID ARTHRITIS
     Route: 048
     Dates: start: 20061011, end: 20061101
  6. GOLIMUMAB [Suspect]
     Route: 058
     Dates: start: 20110811

REACTIONS (1)
  - ARTHRITIS BACTERIAL [None]
